FAERS Safety Report 5799338-5 (Version None)
Quarter: 2008Q3

REPORT INFORMATION
  Report Type: 
  Country: None (occurrence: None)
  Receive Date: 20080702
  Receipt Date: 20080622
  Transmission Date: 20090109
  Serious: Yes (Other)
  Sender: FDA-Public Use
  Company Number: MX-PFIZER INC-2008052980

PATIENT
  Age: 66 Year
  Sex: Male

DRUGS (1)
  1. SILDENAFIL CITRATE [Suspect]
     Indication: ERECTILE DYSFUNCTION
     Route: 048
     Dates: start: 20080501, end: 20080501

REACTIONS (5)
  - BALANCE DISORDER [None]
  - DIZZINESS [None]
  - HYPERHIDROSIS [None]
  - NERVOUSNESS [None]
  - VISION BLURRED [None]
